FAERS Safety Report 23511262 (Version 2)
Quarter: 2024Q1

REPORT INFORMATION
  Report Type: Spontaneous
  Country: FR (occurrence: FR)
  Receive Date: 20240212
  Receipt Date: 20240226
  Transmission Date: 20240410
  Serious: Yes (Other)
  Sender: FDA-Public Use
  Company Number: FR-AFSSAPS-TS2024000105

PATIENT
  Age: 13 Year
  Sex: Male
  Weight: 49.5 kg

DRUGS (2)
  1. ROXITHROMYCIN [Suspect]
     Active Substance: ROXITHROMYCIN
     Indication: Pneumonia mycoplasmal
     Dosage: 150 MILLIGRAM
     Route: 048
     Dates: start: 20240112, end: 20240116
  2. AMOXICILLIN [Suspect]
     Active Substance: AMOXICILLIN
     Indication: Pneumonia mycoplasmal
     Dosage: 1 GRAM, 3 TIMES A DAY
     Route: 048
     Dates: start: 20240113, end: 20240114

REACTIONS (1)
  - Liver injury [Recovering/Resolving]

NARRATIVE: CASE EVENT DATE: 20240118
